FAERS Safety Report 5387390-0 (Version None)
Quarter: 2007Q3

REPORT INFORMATION
  Report Type: 
  Country: None (occurrence: None)
  Receive Date: 20070703
  Receipt Date: 20070406
  Transmission Date: 20080115
  Serious: No
  Sender: FDA-Public Use
  Company Number: 2007PV032798

PATIENT
  Age: 40 Year
  Sex: Female

DRUGS (2)
  1. SYMLIN [Suspect]
     Indication: TYPE 1 DIABETES MELLITUS
     Dosage: 60 MCG;SC
     Route: 058
     Dates: start: 20070110, end: 20070314
  2. REGLAN [Concomitant]

REACTIONS (3)
  - ABDOMINAL DISTENSION [None]
  - ANXIETY [None]
  - GASTROINTESTINAL DISORDER [None]
